FAERS Safety Report 22665821 (Version 2)
Quarter: 2024Q2

REPORT INFORMATION
  Report Type: Spontaneous
  Country: US (occurrence: US)
  Receive Date: 20230703
  Receipt Date: 20240401
  Transmission Date: 20240715
  Serious: Yes (Hospitalization)
  Sender: FDA-Public Use
  Company Number: US-AMNEAL PHARMACEUTICALS-2023-AMRX-02199

PATIENT
  Age: 67 Year
  Sex: Female

DRUGS (4)
  1. RYTARY [Suspect]
     Active Substance: CARBIDOPA\LEVODOPA
     Indication: Product used for unknown indication
     Dosage: 23.75-95MG, 3 CAPSULES, TID
     Route: 048
  2. RYTARY [Suspect]
     Active Substance: CARBIDOPA\LEVODOPA
     Dosage: 23.75-95MG, 2 CAPSULES IN AM, 2 CAP IN NOON, 3 CAP IN EVENING
     Route: 048
     Dates: start: 20221227
  3. RYTARY [Suspect]
     Active Substance: CARBIDOPA\LEVODOPA
     Dosage: (23.75/95 MG) 2 CAPSULES, 3 /DAY
     Route: 048
     Dates: start: 20240305
  4. RYTARY [Suspect]
     Active Substance: CARBIDOPA\LEVODOPA
     Dosage: (23.75/95 MG) 2 CAPSULE 2 TIMES DAILY AND 3 CAPSULE ONCE DAILY
     Route: 048

REACTIONS (3)
  - Adverse event [Unknown]
  - Product use issue [Unknown]
  - Treatment noncompliance [Unknown]

NARRATIVE: CASE EVENT DATE: 20230406
